FAERS Safety Report 21452994 (Version 1)
Quarter: 2022Q4

REPORT INFORMATION
  Report Type: Report from Study
  Country: US (occurrence: None)
  Receive Date: 20221013
  Receipt Date: 20221013
  Transmission Date: 20230113
  Serious: Yes (Death)
  Sender: FDA-Public Use
  Company Number: US-ROCHE-3198843

PATIENT
  Age: 74 Year
  Sex: Female

DRUGS (3)
  1. ATEZOLIZUMAB [Suspect]
     Active Substance: ATEZOLIZUMAB
     Indication: Small cell lung cancer
     Dosage: LAST DOSE OF ATEZOLIZUMAB WAS ON 20/JUL/2022.
     Route: 041
     Dates: start: 20211026
  2. CISPLATIN [Suspect]
     Active Substance: CISPLATIN
     Indication: Small cell lung cancer
     Dosage: LAST DOSE OF CISPLATIN WAS ON 13/DEC/2021
     Route: 042
     Dates: start: 20211026
  3. ETOPOSIDE [Suspect]
     Active Substance: ETOPOSIDE
     Indication: Small cell lung cancer
     Dosage: ON DAYS 1-3?LAST DOSE OF ETOPOSIDE WAS ON 13/DEC/2021
     Route: 042
     Dates: start: 20211026

REACTIONS (1)
  - Sepsis [Fatal]
